FAERS Safety Report 14706810 (Version 1)
Quarter: 2018Q2

REPORT INFORMATION
  Report Type: Report from Study
  Country: None (occurrence: US)
  Receive Date: 20180403
  Receipt Date: 20180403
  Transmission Date: 20180711
  Serious: Yes (Other)
  Sender: FDA-Public Use
  Company Number: US-ABBVIE-18P-163-2305372-00

PATIENT
  Sex: Female

DRUGS (1)
  1. LUPRON DEPOT [Suspect]
     Active Substance: LEUPROLIDE ACETATE
     Indication: ENDOMETRIOSIS
     Route: 030
     Dates: end: 2018

REACTIONS (6)
  - Musculoskeletal pain [Unknown]
  - Fall [Recovered/Resolved]
  - Syncope [Recovered/Resolved]
  - Adverse drug reaction [Unknown]
  - Loss of consciousness [Recovered/Resolved]
  - Contusion [Unknown]
